FAERS Safety Report 13785397 (Version 1)
Quarter: 2017Q3

REPORT INFORMATION
  Report Type: Report from Study
  Country: None (occurrence: AU)
  Receive Date: 20170724
  Receipt Date: 20170724
  Transmission Date: 20171127
  Serious: Yes (Other)
  Sender: FDA-Public Use
  Company Number: AU-ABBVIE-17K-008-2046742-00

PATIENT
  Weight: 91 kg

DRUGS (1)
  1. HUMIRA [Suspect]
     Active Substance: ADALIMUMAB
     Indication: CROHN^S DISEASE
     Route: 058
     Dates: start: 201609

REACTIONS (6)
  - Intestinal fibrosis [Unknown]
  - Small intestinal obstruction [Unknown]
  - C-reactive protein increased [Unknown]
  - Gastrointestinal inflammation [Unknown]
  - Gastrointestinal wall thickening [Unknown]
  - Drug level decreased [Unknown]
